FAERS Safety Report 22166086 (Version 1)
Quarter: 2023Q2

REPORT INFORMATION
  Report Type: Spontaneous
  Country: US (occurrence: US)
  Receive Date: 20230403
  Receipt Date: 20230403
  Transmission Date: 20230721
  Serious: No
  Sender: FDA-Public Use
  Company Number: US-ELI_LILLY_AND_COMPANY-US202303012872

PATIENT
  Sex: Female
  Weight: 63.492 kg

DRUGS (7)
  1. PROZAC [Suspect]
     Active Substance: FLUOXETINE HYDROCHLORIDE
     Indication: Post-traumatic stress disorder
     Dosage: 20 MG, TID
     Route: 065
     Dates: start: 2015
  2. PROZAC [Suspect]
     Active Substance: FLUOXETINE HYDROCHLORIDE
     Indication: Bipolar I disorder
  3. REXULTI [Suspect]
     Active Substance: BREXPIPRAZOLE
     Indication: Post-traumatic stress disorder
     Dosage: 2 MG, DAILY
     Route: 065
     Dates: start: 2015
  4. REXULTI [Suspect]
     Active Substance: BREXPIPRAZOLE
     Indication: Bipolar I disorder
  5. ABILIFY [Suspect]
     Active Substance: ARIPIPRAZOLE
     Indication: Product used for unknown indication
     Dosage: 5 MG, DAILY
     Route: 065
  6. VRAYLAR [Suspect]
     Active Substance: CARIPRAZINE
     Indication: Post-traumatic stress disorder
     Dosage: 1.5 MG, DAILY
     Route: 065
     Dates: start: 20230221, end: 20230307
  7. VRAYLAR [Suspect]
     Active Substance: CARIPRAZINE
     Indication: Bipolar I disorder

REACTIONS (10)
  - Weight increased [Unknown]
  - Increased appetite [Unknown]
  - Muscular weakness [Not Recovered/Not Resolved]
  - Depressed mood [Not Recovered/Not Resolved]
  - Irritability [Not Recovered/Not Resolved]
  - Nightmare [Unknown]
  - Feeling abnormal [Unknown]
  - Somnolence [Not Recovered/Not Resolved]
  - Sleep disorder [Unknown]
  - Fatigue [Recovering/Resolving]
